FAERS Safety Report 7433961-7 (Version None)
Quarter: 2011Q2

REPORT INFORMATION
  Report Type: 
  Country: None (occurrence: None)
  Receive Date: 20110420
  Receipt Date: 20110420
  Transmission Date: 20111010
  Serious: No
  Sender: FDA-Public Use
  Company Number: None

PATIENT
  Age: 57 Year
  Sex: Female
  Weight: 52.1637 kg

DRUGS (1)
  1. LEVAQUIN [Suspect]
     Indication: URINARY TRACT INFECTION
     Dosage: 500 MG PO
     Route: 048
     Dates: start: 20070824, end: 20070831

REACTIONS (13)
  - MUSCLE ATROPHY [None]
  - MUSCULAR WEAKNESS [None]
  - MUSCULOSKELETAL STIFFNESS [None]
  - MUSCLE FATIGUE [None]
  - PERIPHERAL COLDNESS [None]
  - MUSCLE RIGIDITY [None]
  - PAIN IN EXTREMITY [None]
  - ARTHRALGIA [None]
  - MUSCLE CONTRACTIONS INVOLUNTARY [None]
  - DYSSTASIA [None]
  - MUSCLE TWITCHING [None]
  - GAIT DISTURBANCE [None]
  - JOINT SWELLING [None]
